FAERS Safety Report 8877215 (Version 1)
Quarter: 2012Q4

REPORT INFORMATION
  Report Type: 
  Country: US (occurrence: US)
  Receive Date: 20121023
  Receipt Date: 20121023
  Transmission Date: 20130627
  Serious: No
  Sender: FDA-Public Use
  Company Number: US-AMGEN-USASP2012057972

PATIENT
  Age: 67 Year
  Sex: Female
  Weight: 51.7 kg

DRUGS (10)
  1. ENBREL [Suspect]
     Indication: RHEUMATOID ARTHRITIS
     Dosage: 25 mg, 2 times/wk
     Route: 058
  2. ENBREL [Suspect]
     Indication: PSORIATIC ARTHROPATHY
  3. ATIVAN [Concomitant]
     Dosage: UNK
  4. LEUCOVORIN /00566701/ [Concomitant]
     Dosage: UNK
  5. MELOXICAM [Concomitant]
     Dosage: UNK
  6. METHOTREXATE [Concomitant]
     Dosage: UNK
  7. PEPCID                             /00706001/ [Concomitant]
     Dosage: UNK
  8. VITAMIN D /00107901/ [Concomitant]
     Dosage: UNK
  9. TUMS                               /07357001/ [Concomitant]
     Dosage: UNK
  10. MVI [Concomitant]
     Dosage: UNK

REACTIONS (1)
  - Injection site pain [Unknown]
